FAERS Safety Report 8553243-X (Version None)
Quarter: 2012Q3

REPORT INFORMATION
  Report Type: 
  Country: None (occurrence: None)
  Receive Date: 20120731
  Receipt Date: 20120725
  Transmission Date: 20120928
  Serious: Yes (Other)
  Sender: FDA-Public Use
  Company Number: BE-AMGEN-BELSP2012038410

PATIENT
  Age: 80 Year
  Sex: Male

DRUGS (2)
  1. CINACALCET HYDROCHLORIDE [Suspect]
     Dosage: 60 MG, BID
  2. CINACALCET HYDROCHLORIDE [Suspect]
     Indication: HYPERPARATHYROIDISM PRIMARY
     Dosage: 30 MG, UNK

REACTIONS (2)
  - BLOOD CALCIUM INCREASED [None]
  - VOMITING [None]
